FAERS Safety Report 5031790-5 (Version None)
Quarter: 2006Q2

REPORT INFORMATION
  Report Type: 
  Country: None (occurrence: None)
  Receive Date: 20060619
  Receipt Date: 20060607
  Transmission Date: 20061013
  Serious: Yes (Death)
  Sender: FDA-Public Use
  Company Number: 110861ISR

PATIENT
  Age: 71 Year
  Sex: Female

DRUGS (14)
  1. CIPROFLOXACIN [Suspect]
     Route: 048
     Dates: start: 20060118, end: 20060128
  2. CIPROFLOXACIN [Suspect]
     Route: 048
  3. AMITRIPTYLINE HCL [Concomitant]
  4. AQUEOUS CREAM [Concomitant]
  5. BECLOMETHASONE DIPROPIONATE [Concomitant]
  6. COMBIVENT [Concomitant]
  7. METHYLPREDNISOLONE ACETATE [Concomitant]
  8. FOLIC ACID [Concomitant]
  9. HYDROXOCOBALAMIN [Concomitant]
  10. LANSOPRAZOLE [Concomitant]
  11. MEBEVERINE HYDROCHLORIDE [Concomitant]
  12. METHOCARBAMOL [Concomitant]
  13. PARACETAMOL [Concomitant]
  14. QUININE SULFATE [Concomitant]

REACTIONS (3)
  - BLISTER [None]
  - LEUKAEMIA PLASMACYTIC [None]
  - LYMPHOCYTE PERCENTAGE INCREASED [None]
